FAERS Safety Report 17745738 (Version 1)
Quarter: 2020Q2

REPORT INFORMATION
  Report Type: Spontaneous
  Country: DK (occurrence: DK)
  Receive Date: 20200505
  Receipt Date: 20200505
  Transmission Date: 20200714
  Serious: Yes (Other)
  Sender: FDA-Public Use
  Company Number: DK-AMGEN-DNKSP2020069863

PATIENT
  Age: 15 Year
  Sex: Male

DRUGS (3)
  1. EMTHEXATE [METHOTREXATE] [Concomitant]
     Indication: JUVENILE IDIOPATHIC ARTHRITIS
     Dosage: 7.5 MILLIGRAM, QWK;  STRENGTH: 2.5 MG
     Route: 048
     Dates: start: 20190607
  2. AMGEVITA [Suspect]
     Active Substance: ADALIMUMAB
     Dosage: 40 MILLIGRAM, Q2WK
     Route: 058
  3. AMGEVITA [Suspect]
     Active Substance: ADALIMUMAB
     Indication: JUVENILE IDIOPATHIC ARTHRITIS
     Dosage: 40 MILLIGRAM, Q2WK
     Route: 058
     Dates: start: 201906, end: 202003

REACTIONS (2)
  - Acne [Not Recovered/Not Resolved]
  - Acne fulminans [Not Recovered/Not Resolved]

NARRATIVE: CASE EVENT DATE: 202001
